FAERS Safety Report 6394237-2 (Version None)
Quarter: 2009Q4

REPORT INFORMATION
  Report Type: 
  Country: None (occurrence: None)
  Receive Date: 20091006
  Receipt Date: 20090923
  Transmission Date: 20100525
  Serious: Yes (Other)
  Sender: FDA-Public Use
  Company Number: 1000009231

PATIENT
  Age: 87 Year
  Sex: Female

DRUGS (11)
  1. MEMANTINE HCL [Suspect]
     Indication: DEMENTIA ALZHEIMER'S TYPE
     Dosage: 10 MG, (10 MG, 1 IN 1 D), ORAL
     Route: 048
     Dates: start: 20080801, end: 20080101
  2. MEMANTINE HCL [Suspect]
     Indication: DEMENTIA ALZHEIMER'S TYPE
     Dosage: 15 MG (15 MG, 1 IN 1 D), ORAL
     Route: 048
     Dates: start: 20080101
  3. SYMBICORT [Concomitant]
  4. TERBASMIN [Concomitant]
  5. SINEMET [Concomitant]
  6. SEGURIL (TABLETS) [Concomitant]
  7. ENALAPRIL MALEATE [Concomitant]
  8. OMEPRAZOLE [Concomitant]
  9. SEROQUEL [Concomitant]
  10. ADIRO (TABLETS) [Concomitant]
  11. DEPRAX (TABLETS) [Concomitant]

REACTIONS (1)
  - PEMPHIGOID [None]
